FAERS Safety Report 11617311 (Version 1)
Quarter: 2015Q4

REPORT INFORMATION
  Report Type: Spontaneous
  Country: GB (occurrence: GB)
  Receive Date: 20151009
  Receipt Date: 20151009
  Transmission Date: 20160304
  Serious: Yes (Hospitalization, Other)
  Sender: FDA-Public Use
  Company Number: GB-JNJFOC-20151004121

PATIENT
  Age: 56 Year
  Sex: Female
  Weight: 94 kg

DRUGS (11)
  1. NOVORAPID [Concomitant]
     Active Substance: INSULIN ASPART
  2. RAMIPRIL. [Concomitant]
     Active Substance: RAMIPRIL
  3. ATORVASTATIN [Concomitant]
     Active Substance: ATORVASTATIN
  4. ASPIRIN. [Concomitant]
     Active Substance: ASPIRIN
  5. CANAGLIFLOZIN [Suspect]
     Active Substance: CANAGLIFLOZIN
     Indication: INSULIN-REQUIRING TYPE 2 DIABETES MELLITUS
     Route: 048
     Dates: start: 20150612, end: 201507
  6. CANAGLIFLOZIN [Suspect]
     Active Substance: CANAGLIFLOZIN
     Indication: INSULIN-REQUIRING TYPE 2 DIABETES MELLITUS
     Route: 048
     Dates: start: 201507, end: 20150826
  7. BISACODYL. [Concomitant]
     Active Substance: BISACODYL
  8. METFORMIN [Concomitant]
     Active Substance: METFORMIN HYDROCHLORIDE
  9. RISPERIDONE. [Concomitant]
     Active Substance: RISPERIDONE
     Indication: MENTAL DISORDER
  10. LANTUS [Concomitant]
     Active Substance: INSULIN GLARGINE
  11. CARBAMAZEPINE. [Concomitant]
     Active Substance: CARBAMAZEPINE

REACTIONS (3)
  - Hyponatraemia [Recovered/Resolved]
  - Abnormal behaviour [Recovered/Resolved]
  - Diabetic ketoacidosis [Recovered/Resolved]

NARRATIVE: CASE EVENT DATE: 20150826
